FAERS Safety Report 7272741-2 (Version None)
Quarter: 2011Q1

REPORT INFORMATION
  Report Type: 
  Country: None (occurrence: None)
  Receive Date: 20110203
  Receipt Date: 20110202
  Transmission Date: 20110831
  Serious: No
  Sender: FDA-Public Use
  Company Number: US-PFIZER INC-2011024411

PATIENT
  Sex: Female
  Weight: 101 kg

DRUGS (3)
  1. AMLODIPINE [Concomitant]
     Indication: HYPERTENSION
     Dosage: UNK
     Route: 048
  2. NEBIVOLOL [Concomitant]
     Indication: HYPERTENSION
     Dosage: UNK
     Route: 048
  3. LYRICA [Suspect]
     Indication: HEADACHE
     Dosage: UNK, 2X/DAY
     Route: 048
     Dates: start: 20110201

REACTIONS (1)
  - VOMITING [None]
